FAERS Safety Report 11511042 (Version 1)
Quarter: 2015Q3

REPORT INFORMATION
  Report Type: Spontaneous
  Country: JP (occurrence: JP)
  Receive Date: 20150915
  Receipt Date: 20150915
  Transmission Date: 20151125
  Serious: Yes (Hospitalization, Disabling, Other)
  Sender: FDA-Public Use
  Company Number: JP-ARBOR PHARMACEUTICALS, LLC-JP-2015ARB000057

PATIENT

DRUGS (1)
  1. GLIADEL [Suspect]
     Active Substance: CARMUSTINE
     Indication: GLIOBLASTOMA
     Dosage: 7.7 MG, 8 TOTAL
     Dates: start: 20140529, end: 20140602

REACTIONS (3)
  - Post procedural complication [Recovered/Resolved]
  - Brain oedema [Recovered/Resolved]
  - Brain midline shift [None]

NARRATIVE: CASE EVENT DATE: 20140529
